FAERS Safety Report 7343798-5 (Version None)
Quarter: 2011Q1

REPORT INFORMATION
  Report Type: 
  Country: None (occurrence: None)
  Receive Date: 20110308
  Receipt Date: 20110308
  Transmission Date: 20110831
  Serious: Yes (Other)
  Sender: FDA-Public Use
  Company Number: None

PATIENT
  Age: 41 Year
  Sex: Female
  Weight: 99.7913 kg

DRUGS (3)
  1. HERCEPTIN [Suspect]
     Indication: BREAST CANCER
     Dosage: 400MG/200MG QWEEK IV DRIP
     Route: 041
     Dates: start: 20110117, end: 20110207
  2. PACLITAXEL [Suspect]
     Indication: BREAST CANCER
     Dosage: 170MG QWEEK IV DRIP
     Route: 041
     Dates: start: 20110117, end: 20110131
  3. HERCEPTIN [Suspect]

REACTIONS (2)
  - RETINAL HAEMORRHAGE [None]
  - PNEUMONITIS [None]
